FAERS Safety Report 7340975-4 (Version None)
Quarter: 2011Q1

REPORT INFORMATION
  Report Type: 
  Country: None (occurrence: None)
  Receive Date: 20110309
  Receipt Date: 20110105
  Transmission Date: 20110831
  Serious: No
  Sender: FDA-Public Use
  Company Number: US-ABBOTT-11P-163-0695730-00

PATIENT
  Sex: Female
  Weight: 111.68 kg

DRUGS (11)
  1. TYLENOL [Concomitant]
     Indication: HEADACHE
  2. LUPRON DEPOT [Suspect]
     Indication: PREMENSTRUAL SYNDROME
     Dates: start: 20101112
  3. NASONEX [Concomitant]
     Indication: HYPERSENSITIVITY
  4. MAXALT [Concomitant]
     Indication: MIGRAINE
  5. ALBUTEROL [Concomitant]
     Indication: ASTHMA
  6. TRAZAMINE [Concomitant]
     Indication: INSOMNIA
  7. MULTI-VITAMIN [Concomitant]
     Indication: SUPPLEMENTATION THERAPY
     Dosage: DAILY
  8. IRON [Concomitant]
     Indication: MINERAL SUPPLEMENTATION
  9. LUPRON DEPOT [Suspect]
     Indication: OVARIAN CYST
  10. ALLEGRA [Concomitant]
     Indication: HYPERSENSITIVITY
  11. EXCEDRIN (MIGRAINE) [Concomitant]
     Indication: MIGRAINE

REACTIONS (6)
  - MENSTRUAL DISORDER [None]
  - ABDOMINAL DISTENSION [None]
  - MUSCLE SPASMS [None]
  - MIGRAINE [None]
  - WEIGHT INCREASED [None]
  - DRUG EFFECT DECREASED [None]
